FAERS Safety Report 6508172-X (Version None)
Quarter: 2009Q4

REPORT INFORMATION
  Report Type: 
  Country: None (occurrence: None)
  Receive Date: 20091221
  Receipt Date: 20081219
  Transmission Date: 20100525
  Serious: Yes (Other)
  Sender: FDA-Public Use
  Company Number: US-ASTRAZENECA-2008UW28459

PATIENT
  Age: 84 Year
  Sex: Female
  Weight: 65.8 kg

DRUGS (2)
  1. CRESTOR [Suspect]
     Indication: BLOOD CHOLESTEROL
     Route: 048
     Dates: start: 20050101, end: 20061022
  2. ALEVE (CAPLET) [Concomitant]

REACTIONS (3)
  - MUSCULAR WEAKNESS [None]
  - MYALGIA [None]
  - RHABDOMYOLYSIS [None]
